FAERS Safety Report 18189115 (Version 1)
Quarter: 2020Q3

REPORT INFORMATION
  Report Type: Spontaneous
  Country: GB (occurrence: GB)
  Receive Date: 20200824
  Receipt Date: 20200824
  Transmission Date: 20201103
  Serious: No
  Sender: FDA-Public Use
  Company Number: GB-JAZZ-2020-GB-002369

PATIENT
  Age: 65 Year
  Sex: Male
  Weight: 77 kg

DRUGS (7)
  1. ENOXAPARIN SODIUM. [Concomitant]
     Active Substance: ENOXAPARIN SODIUM
     Indication: ILL-DEFINED DISORDER
     Dosage: ()
  2. LANSOPRAZOLE. [Concomitant]
     Active Substance: LANSOPRAZOLE
     Indication: ILL-DEFINED DISORDER
     Dosage: ()
  3. ACICLOVIR [Concomitant]
     Active Substance: ACYCLOVIR
     Indication: ILL-DEFINED DISORDER
     Dosage: ()
  4. ALLOPURINOL. [Concomitant]
     Active Substance: ALLOPURINOL
     Indication: ILL-DEFINED DISORDER
     Dosage: ()
  5. VYXEOS [Suspect]
     Active Substance: CYTARABINE\DAUNORUBICIN
     Indication: ACUTE MYELOID LEUKAEMIA
     Route: 042
     Dates: start: 20200109, end: 20200113
  6. CHLORHEXIDINE DIGLUCONATE SOLUTION [Concomitant]
     Indication: ILL-DEFINED DISORDER
     Dosage: ()
  7. AMBISOME [Concomitant]
     Active Substance: AMPHOTERICIN B
     Indication: ILL-DEFINED DISORDER
     Dosage: ()

REACTIONS (1)
  - Acantholysis [Recovering/Resolving]

NARRATIVE: CASE EVENT DATE: 20200117
